FAERS Safety Report 10213580 (Version 1)
Quarter: 2014Q2

REPORT INFORMATION
  Report Type: Spontaneous
  Country: GB (occurrence: GB)
  Receive Date: 20140603
  Receipt Date: 20140603
  Transmission Date: 20141212
  Serious: Yes (Life-Threatening, Other)
  Sender: FDA-Public Use
  Company Number: GB-RANBAXY-2014RR-81799

PATIENT
  Sex: Male

DRUGS (1)
  1. CIPROFLOXACIN [Suspect]
     Indication: INFECTION
     Dosage: UNK
     Route: 050
     Dates: start: 201311, end: 201311

REACTIONS (7)
  - Respiratory arrest [Recovered/Resolved]
  - Apparent death [Recovered/Resolved]
  - Haematochezia [Recovered/Resolved]
  - Eye disorder [Recovered/Resolved]
  - Dysphagia [Recovered/Resolved]
  - Wrong technique in drug usage process [Unknown]
  - Nephrolithiasis [Recovered/Resolved]
